FAERS Safety Report 8616055-4 (Version None)
Quarter: 2012Q3

REPORT INFORMATION
  Report Type: 
  Country: None (occurrence: None)
  Receive Date: 20120823
  Receipt Date: 20120817
  Transmission Date: 20120928
  Serious: Yes (Other)
  Sender: FDA-Public Use
  Company Number: JP-ROCHE-1103850

PATIENT
  Age: 73 Year
  Sex: Female

DRUGS (1)
  1. XELODA [Suspect]
     Indication: PRODUCT USED FOR UNKNOWN INDICATION
     Dosage: DOSAGE IS UNCERTAIN.
     Route: 048
     Dates: start: 20120701

REACTIONS (4)
  - DISSEMINATED INTRAVASCULAR COAGULATION [None]
  - STOMATITIS [None]
  - HEPATIC FUNCTION ABNORMAL [None]
  - BONE MARROW FAILURE [None]
